FAERS Safety Report 17481945 (Version 1)
Quarter: 2020Q1

REPORT INFORMATION
  Report Type: Report from Study
  Country: DE (occurrence: DE)
  Receive Date: 20200302
  Receipt Date: 20200302
  Transmission Date: 20200409
  Serious: Yes (Death, Hospitalization)
  Sender: FDA-Public Use
  Company Number: DE-CELLTRION INC.-2020DE020013

PATIENT

DRUGS (1)
  1. TRUXIMA [Suspect]
     Active Substance: RITUXIMAB-ABBS
     Indication: DIFFUSE LARGE B-CELL LYMPHOMA
     Dosage: 1400 MG
     Route: 042
     Dates: start: 20180924, end: 20191007

REACTIONS (2)
  - Overdose [Unknown]
  - Disease progression [Fatal]

NARRATIVE: CASE EVENT DATE: 20181022
